FAERS Safety Report 4429033-6 (Version None)
Quarter: 2004Q3

REPORT INFORMATION
  Report Type: 
  Country: None (occurrence: None)
  Receive Date: 20040726
  Receipt Date: 20040308
  Transmission Date: 20050211
  Serious: No
  Sender: FDA-Public Use
  Company Number: USA040361334

PATIENT
  Age: 81 Year
  Sex: Female

DRUGS (4)
  1. FORTEO [Suspect]
     Dates: start: 20040226, end: 20040301
  2. ACTONEL [Concomitant]
  3. FOSAMAX [Concomitant]
  4. MIACALCIN [Concomitant]

REACTIONS (1)
  - BLISTER [None]
